FAERS Safety Report 18930047 (Version 6)
Quarter: 2023Q2

REPORT INFORMATION
  Report Type: Spontaneous
  Country: US (occurrence: US)
  Receive Date: 20210223
  Receipt Date: 20230417
  Transmission Date: 20230721
  Serious: Yes (Hospitalization, Other)
  Sender: FDA-Public Use
  Company Number: US-PFIZER INC-2021149119

PATIENT
  Age: 56 Year
  Sex: Female
  Weight: 68.49 kg

DRUGS (3)
  1. SOMAVERT [Suspect]
     Active Substance: PEGVISOMANT
     Indication: Acromegaly
     Dosage: 20 MG, 1X/DAY
     Route: 058
     Dates: start: 20210220
  2. SOMAVERT [Suspect]
     Active Substance: PEGVISOMANT
     Indication: Pituitary enlargement
  3. SIGNIFOR LAR [Concomitant]
     Active Substance: PASIREOTIDE PAMOATE
     Dosage: 60 MG, MONTHLY

REACTIONS (4)
  - Renal cyst [Unknown]
  - Drug ineffective [Not Recovered/Not Resolved]
  - Ovarian cyst [Unknown]
  - Thyroid cyst [Unknown]

NARRATIVE: CASE EVENT DATE: 20220101
